FAERS Safety Report 9473816 (Version 2)
Quarter: 2013Q3

REPORT INFORMATION
  Report Type: Spontaneous
  Country: US (occurrence: US)
  Receive Date: 20130823
  Receipt Date: 20130823
  Transmission Date: 20140515
  Serious: No
  Sender: FDA-Public Use
  Company Number: US-BRISTOL-MYERS SQUIBB COMPANY-17016338

PATIENT
  Age: 56 Year
  Sex: Female

DRUGS (8)
  1. SPRYCEL (CML) TABS 100 MG [Suspect]
     Indication: CHRONIC MYELOID LEUKAEMIA
     Route: 048
     Dates: start: 20120902
  2. ANAFRANIL [Suspect]
  3. CYTOMEL [Concomitant]
  4. SYNTHROID [Concomitant]
  5. MAGNESIUM LACTATE [Concomitant]
  6. CARVEDILOL [Concomitant]
  7. POTASSIUM [Concomitant]
  8. PROBIOTICA [Concomitant]

REACTIONS (11)
  - Hypotension [Recovered/Resolved]
  - Tachycardia [Recovered/Resolved]
  - Presyncope [Recovered/Resolved]
  - Decreased appetite [Recovering/Resolving]
  - Rash [Recovering/Resolving]
  - Anaemia [Recovering/Resolving]
  - Fatigue [Recovering/Resolving]
  - Eye swelling [Recovering/Resolving]
  - Hypertension [Unknown]
  - Amnesia [Unknown]
  - Paraesthesia [Unknown]
